FAERS Safety Report 20923827 (Version 2)
Quarter: 2022Q2

REPORT INFORMATION
  Report Type: Spontaneous
  Country: ZA (occurrence: ZA)
  Receive Date: 20220607
  Receipt Date: 20220608
  Transmission Date: 20220720
  Serious: Yes (Death, Hospitalization, Other)
  Sender: FDA-Public Use
  Company Number: ZA-EMA-DD-20190923-bhardwaj_r-134607

PATIENT
  Age: 36 Year
  Sex: Female

DRUGS (19)
  1. TEDIZOLID PHOSPHATE [Suspect]
     Active Substance: TEDIZOLID PHOSPHATE
     Indication: Tuberculosis
     Dosage: DOSAGE FORM: UNSPECIFIED
     Route: 065
     Dates: start: 201806
  2. LINEZOLID [Suspect]
     Active Substance: LINEZOLID
     Indication: Tuberculosis
     Dosage: 600 MG, QD
     Route: 048
     Dates: start: 201806
  3. SIRTURO [Suspect]
     Active Substance: BEDAQUILINE FUMARATE
     Indication: Tuberculosis
     Dosage: 200 MG, TIW
     Route: 048
     Dates: start: 201806
  4. DELAMANID [Suspect]
     Active Substance: DELAMANID
     Indication: Tuberculosis
     Dosage: 100 MG, BID
     Route: 048
     Dates: start: 201806
  5. ISONIAZID [Suspect]
     Active Substance: ISONIAZID
     Indication: Tuberculosis
     Dosage: 600 MG, QD
     Route: 048
     Dates: start: 201806
  6. PARA-AMINOSALICYLIC ACID [Suspect]
     Active Substance: AMINOSALICYLIC ACID
     Indication: Tuberculosis
     Dosage: DOSAGE FORM: UNSPECIFIED
     Route: 065
     Dates: start: 201810
  7. CLOFAZIMINE [Suspect]
     Active Substance: CLOFAZIMINE
     Indication: Tuberculosis
     Dosage: 100 MG, QD
     Route: 048
     Dates: start: 201806
  8. PYRAZINAMIDE [Suspect]
     Active Substance: PYRAZINAMIDE
     Indication: Tuberculosis
     Dosage: 1.75 G, QD
     Route: 048
     Dates: start: 201806
  9. LEVOFLOXACIN [Suspect]
     Active Substance: LEVOFLOXACIN
     Indication: Tuberculosis
     Dosage: 750 MG, QD
     Route: 048
     Dates: start: 201806
  10. EMTRICITABINE [Concomitant]
     Active Substance: EMTRICITABINE
     Indication: Antiretroviral therapy
     Dosage: 200 MG, QD
     Route: 048
  11. LOPERAMIDE [Concomitant]
     Active Substance: LOPERAMIDE
     Dosage: 20 MG, PRN
     Route: 048
  12. PYRIDOXINE [Concomitant]
     Active Substance: PYRIDOXINE
     Indication: Product used for unknown indication
     Dosage: 150 MG, QD
     Route: 048
  13. TRAZODONE [Concomitant]
     Active Substance: TRAZODONE HYDROCHLORIDE
     Indication: Tuberculosis
     Dosage: 750 MG, QD
     Route: 048
     Dates: start: 201806
  14. TENOFOVIR [Concomitant]
     Active Substance: TENOFOVIR
     Indication: Antiretroviral therapy
     Dosage: 300 MG, QD
     Route: 048
  15. TERIZIDONE [Concomitant]
     Active Substance: TERIZIDONE
     Dosage: 750 MG, QD
     Route: 048
     Dates: start: 201806
  16. ATAZANAVIR [Concomitant]
     Active Substance: ATAZANAVIR
     Dosage: 300 MG, QD
     Route: 048
  17. MAXOLON [Concomitant]
     Active Substance: METOCLOPRAMIDE HYDROCHLORIDE
     Indication: Product used for unknown indication
     Dosage: 20 MG, PRN
     Route: 048
  18. RITONAVIR [Concomitant]
     Active Substance: RITONAVIR
     Indication: Antiretroviral therapy
     Dosage: 300 MG, QD
     Route: 048
  19. BACTRIM [Concomitant]
     Active Substance: SULFAMETHOXAZOLE\TRIMETHOPRIM
     Dosage: 2 DOSAGE FORM (DF), QD
     Route: 048

REACTIONS (20)
  - Dyspnoea [Unknown]
  - Blood calcium decreased [Unknown]
  - Incorrect product administration duration [Unknown]
  - Weight decreased [Unknown]
  - Product use in unapproved indication [Unknown]
  - Rash [Unknown]
  - Diarrhoea [Not Recovered/Not Resolved]
  - Gamma-glutamyltransferase increased [Unknown]
  - Intentional product use issue [Unknown]
  - Dehydration [Fatal]
  - Aspartate aminotransferase increased [Unknown]
  - Blood pressure decreased [Unknown]
  - Bilirubin conjugated increased [Recovered/Resolved]
  - Sepsis [Fatal]
  - Night sweats [Unknown]
  - Off label use [Unknown]
  - Blood lactate dehydrogenase increased [Unknown]
  - Myelosuppression [Unknown]
  - Vomiting [Not Recovered/Not Resolved]
  - Blood urea increased [Recovered/Resolved]

NARRATIVE: CASE EVENT DATE: 20181201
